FAERS Safety Report 23971716 (Version 2)
Quarter: 2024Q3

REPORT INFORMATION
  Report Type: Report from Study
  Country: CA (occurrence: CA)
  Receive Date: 20240613
  Receipt Date: 20240705
  Transmission Date: 20241017
  Serious: Yes (Other)
  Sender: BIOCON
  Company Number: CA-MYLANLABS-2022M1140307

PATIENT

DRUGS (4)
  1. HULIO [Suspect]
     Active Substance: ADALIMUMAB-FKJP
     Indication: Rheumatoid arthritis
     Dosage: 40 MILLIGRAM, BIWEEKLY
     Route: 058
     Dates: start: 20210717
  2. HULIO [Suspect]
     Active Substance: ADALIMUMAB-FKJP
     Indication: Osteoporosis
     Dosage: 40 MG, Q2W
     Route: 058
     Dates: start: 20210729
  3. HULIO [Suspect]
     Active Substance: ADALIMUMAB-FKJP
     Dosage: 40 MILLIGRAM, BIWEEKLY (EVERY 2 WEEKS)
     Route: 058
     Dates: start: 20210805
  4. HULIO [Suspect]
     Active Substance: ADALIMUMAB-FKJP
     Dosage: UNK, BIWEEKLY
     Route: 058
     Dates: start: 20210917

REACTIONS (9)
  - Weight decreased [Unknown]
  - Cerebral disorder [Unknown]
  - Haemochromatosis [Unknown]
  - Injection site haemorrhage [Unknown]
  - Injection site mass [Recovered/Resolved]
  - Circumstance or information capable of leading to medication error [Unknown]
  - Wrong technique in product usage process [Unknown]
  - Off label use [Unknown]
  - Drug ineffective for unapproved indication [Unknown]

NARRATIVE: CASE EVENT DATE: 20221213
